FAERS Safety Report 24653179 (Version 5)
Quarter: 2025Q1

REPORT INFORMATION
  Report Type: Spontaneous
  Country: US (occurrence: US)
  Receive Date: 20241122
  Receipt Date: 20250307
  Transmission Date: 20250409
  Serious: No
  Sender: MERCK SHARP & DOHME LLC
  Company Number: US-PFIZER INC-PV202400150281

PATIENT
  Age: 71 Year
  Sex: Female

DRUGS (2)
  1. TUKYSA [Suspect]
     Active Substance: TUCATINIB
     Indication: Breast cancer female
     Dosage: DOSE DESCRIPTION : 150MG; 2 TABLETS TWICE DAILY?DAILY DOSE : 600 MILLIGRAM?CONCENTRATION: 150 MIL...
     Route: 048
  2. TUKYSA [Suspect]
     Active Substance: TUCATINIB
     Indication: Breast cancer female
     Dosage: 50 MG; TAKE FOUR TABLETS BY MOUTH EVERY TWELVE HOURS/50MG; TAKE 4 TABLETS TWICE DAILY
     Route: 048

REACTIONS (4)
  - Arthralgia [Unknown]
  - Pain in extremity [Unknown]
  - Loss of personal independence in daily activities [Unknown]
  - Neoplasm progression [Unknown]
